FAERS Safety Report 4657731-8 (Version None)
Quarter: 2005Q2

REPORT INFORMATION
  Report Type: 
  Country: None (occurrence: None)
  Receive Date: 20050510
  Receipt Date: 20050429
  Transmission Date: 20051028
  Serious: Yes (Death, Hospitalization)
  Sender: FDA-Public Use
  Company Number: FR-ABBOTT-05P-056-0298970-00

PATIENT
  Age: 35 Year
  Sex: Female

DRUGS (5)
  1. DEPAKENE [Suspect]
     Indication: EPILEPSY
     Route: 048
     Dates: start: 20030301
  2. VIREAD [Suspect]
     Indication: HIV INFECTION
     Route: 048
  3. LAMIVUDINE [Concomitant]
     Indication: HIV INFECTION
     Route: 048
     Dates: end: 20040901
  4. PROTEASE INHIBITORS [Concomitant]
     Indication: HIV INFECTION
     Dates: end: 20040901
  5. SULFADIAZINE [Concomitant]
     Indication: CEREBRAL TOXOPLASMOSIS
     Route: 065
     Dates: end: 20040901

REACTIONS (3)
  - BLOOD CREATININE INCREASED [None]
  - FANCONI SYNDROME ACQUIRED [None]
  - RENAL TUBULAR DISORDER [None]
